FAERS Safety Report 4746262-2 (Version None)
Quarter: 2005Q3

REPORT INFORMATION
  Report Type: 
  Country: None (occurrence: None)
  Receive Date: 20050816
  Receipt Date: 20050802
  Transmission Date: 20060218
  Serious: Yes (Other)
  Sender: FDA-Public Use
  Company Number: USA050393466

PATIENT
  Age: 58 Year
  Sex: Female

DRUGS (2)
  1. FORTEO [Suspect]
     Indication: OSTEOPOROSIS
     Dates: start: 20050315
  2. MIACALCIN [Concomitant]

REACTIONS (8)
  - ARTHRALGIA [None]
  - AUTOIMMUNE DISORDER [None]
  - CONNECTIVE TISSUE DISORDER [None]
  - HEPATITIS C [None]
  - INJECTION SITE ERYTHEMA [None]
  - INJECTION SITE HAEMORRHAGE [None]
  - PHARMACEUTICAL PRODUCT COMPLAINT [None]
  - TENDON INJURY [None]
